FAERS Safety Report 12737883 (Version 2)
Quarter: 2016Q4

REPORT INFORMATION
  Report Type: Spontaneous
  Country: AT (occurrence: AT)
  Receive Date: 20160913
  Receipt Date: 20161004
  Transmission Date: 20170207
  Serious: Yes (Other)
  Sender: FDA-Public Use
  Company Number: AT-BAYER-2016-172790

PATIENT
  Age: 80 Year
  Sex: Male

DRUGS (2)
  1. STIVARGA [Suspect]
     Active Substance: REGORAFENIB
     Indication: ADENOCARCINOMA OF COLON
     Dosage: 80 MG, QD
     Dates: start: 20151015, end: 20160724
  2. STIVARGA [Suspect]
     Active Substance: REGORAFENIB
     Indication: ADENOCARCINOMA OF COLON
     Dosage: DAILY DOSE 120 MG
     Dates: start: 2016

REACTIONS (7)
  - Dysphagia [None]
  - Dry throat [None]
  - Pain [None]
  - Arthralgia [None]
  - Adenocarcinoma of colon [None]
  - Diarrhoea [None]
  - Decreased appetite [None]
